FAERS Safety Report 6128672-4 (Version None)
Quarter: 2009Q1

REPORT INFORMATION
  Report Type: 
  Country: None (occurrence: None)
  Receive Date: 20090323
  Receipt Date: 20090311
  Transmission Date: 20090719
  Serious: Yes (Death, Other)
  Sender: FDA-Public Use
  Company Number: US-PFIZER INC-2009182626

PATIENT
  Sex: Male
  Weight: 72.562 kg

DRUGS (1)
  1. LYRICA [Suspect]
     Indication: SCIATICA
     Dates: start: 20061201

REACTIONS (9)
  - ABNORMAL BEHAVIOUR [None]
  - CONFUSIONAL STATE [None]
  - DEATH [None]
  - DELIRIUM [None]
  - DEPRESSION [None]
  - FEELING ABNORMAL [None]
  - HALLUCINATION [None]
  - HOSTILITY [None]
  - RESTLESSNESS [None]
